FAERS Safety Report 7312616-3 (Version None)
Quarter: 2011Q1

REPORT INFORMATION
  Report Type: 
  Country: None (occurrence: None)
  Receive Date: 20110224
  Receipt Date: 20101124
  Transmission Date: 20110831
  Serious: No
  Sender: FDA-Public Use
  Company Number: US-MYLANLABS-2010S1021859

PATIENT
  Sex: Female

DRUGS (2)
  1. NASAL PREPARATIONS [Concomitant]
  2. ATENOLOL [Suspect]
     Indication: BLOOD PRESSURE INCREASED
     Route: 048

REACTIONS (2)
  - SINUS HEADACHE [None]
  - HEADACHE [None]
